FAERS Safety Report 7103537-X (Version None)
Quarter: 2010Q4

REPORT INFORMATION
  Report Type: 
  Country: None (occurrence: None)
  Receive Date: 20101115
  Receipt Date: 20101104
  Transmission Date: 20110411
  Serious: Yes (Death)
  Sender: FDA-Public Use
  Company Number: US-BAXTER-2010BH022526

PATIENT
  Sex: Female

DRUGS (2)
  1. DIANEAL [Suspect]
     Indication: PERITONEAL DIALYSIS
     Route: 033
     Dates: start: 20060101, end: 20101026
  2. ANTIBIOTICS [Concomitant]
     Indication: ANTIBIOTIC PROPHYLAXIS
     Route: 065
     Dates: start: 20100809

REACTIONS (7)
  - ANAEMIA [None]
  - BLOOD GLUCOSE DECREASED [None]
  - CEREBRAL HAEMORRHAGE [None]
  - CONFUSIONAL STATE [None]
  - DEVICE LEAKAGE [None]
  - DRUG DOSE OMISSION [None]
  - LEUKAEMIA [None]
